FAERS Safety Report 17203519 (Version 4)
Quarter: 2020Q2

REPORT INFORMATION
  Report Type: Spontaneous
  Country: US (occurrence: US)
  Receive Date: 20191226
  Receipt Date: 20200630
  Transmission Date: 20200713
  Serious: Yes (Hospitalization, Congenital Anomaly, Other)
  Sender: FDA-Public Use
  Company Number: US-CATALYST PHARMACEUTICALS, INC-2019CAT00370

PATIENT
  Age: 31 Year
  Sex: Female

DRUGS (10)
  1. FIRDAPSE [Suspect]
     Active Substance: AMIFAMPRIDINE
     Dosage: 10 MG, 3-4 TIMES PER DAY
  2. MELATONIN [Concomitant]
     Active Substance: MELATONIN
     Dosage: 5 MG, 1X/DAY AT NIGHT
  3. IVIG [Concomitant]
     Active Substance: HUMAN IMMUNOGLOBULIN G
     Dosage: UNK EVERY 4-6 MONTHS
     Route: 042
  4. CITALOPRAM [Concomitant]
     Active Substance: CITALOPRAM HYDROBROMIDE
  5. MESTINON [Concomitant]
     Active Substance: PYRIDOSTIGMINE BROMIDE
     Dosage: 120 MG, 1X/DAY (AT NIGHTTIME)
  6. MESTINON [Concomitant]
     Active Substance: PYRIDOSTIGMINE BROMIDE
     Dosage: 180 MG, 2X/DAY
     Route: 048
  7. MESTINON [Concomitant]
     Active Substance: PYRIDOSTIGMINE BROMIDE
     Dosage: 60 MG, 4X/DAY
     Dates: start: 202004
  8. MELATONIN [Concomitant]
     Active Substance: MELATONIN
     Dosage: 10 MG, 1X/DAY AT NIGHT
  9. FIRDAPSE [Suspect]
     Active Substance: AMIFAMPRIDINE
     Indication: MYASTHENIC SYNDROME
     Dosage: 10 MG, 4X/DAY
  10. UNSPECIFIED ANTIDEPRESSANT [Concomitant]
     Active Substance: UNSPECIFIED INGREDIENT
     Dosage: UNK

REACTIONS (18)
  - Exposure during pregnancy [Recovered/Resolved]
  - Hyporeflexia [Not Recovered/Not Resolved]
  - Foetal hypokinesia [Recovered/Resolved]
  - Foetal malnutrition [Recovered/Resolved]
  - Foetal heart rate indeterminate [Recovered/Resolved]
  - Hypokalaemia [Recovering/Resolving]
  - Blood loss anaemia [Recovering/Resolving]
  - Transaminases increased [Recovered/Resolved]
  - Foetal growth restriction [Recovered/Resolved]
  - Caesarean section [Recovered/Resolved]
  - Haemorrhage in pregnancy [Recovered/Resolved]
  - Treatment noncompliance [Not Recovered/Not Resolved]
  - Foetal heart rate deceleration abnormality [Recovered/Resolved]
  - Foetal distress syndrome [Recovered/Resolved]
  - Hypophagia [Recovered/Resolved]
  - Weight increased [Not Recovered/Not Resolved]
  - Stress [Recovered/Resolved]
  - Pre-eclampsia [Recovered/Resolved]

NARRATIVE: CASE EVENT DATE: 2019
